FAERS Safety Report 8614913-8 (Version None)
Quarter: 2012Q3

REPORT INFORMATION
  Report Type: 
  Country: None (occurrence: None)
  Receive Date: 20120823
  Receipt Date: 20120128
  Transmission Date: 20120928
  Serious: Yes (Other)
  Sender: FDA-Public Use
  Company Number: IT-GILEAD-2012-0049703

PATIENT
  Sex: Female

DRUGS (11)
  1. RANOLAZINE [Suspect]
     Indication: ANGINA PECTORIS
     Dosage: 500 MG, BID
     Dates: start: 20090521, end: 20090522
  2. LANSOPRAZOLE [Concomitant]
  3. VENTOLIN [Concomitant]
     Route: 045
  4. NITROGLYCERIN [Concomitant]
  5. PREDNISOLONE [Concomitant]
  6. RAMIPRIL [Concomitant]
  7. IMDUR [Concomitant]
  8. LIPITOR [Concomitant]
  9. BUMETANIDE [Concomitant]
  10. IVABRADINE [Concomitant]
  11. RISEDRONATE SODIUM [Concomitant]

REACTIONS (4)
  - SWELLING FACE [None]
  - PALPITATIONS [None]
  - HYPERHIDROSIS [None]
  - DIZZINESS [None]
